FAERS Safety Report 16555852 (Version 1)
Quarter: 2019Q3

REPORT INFORMATION
  Report Type: Spontaneous
  Country: BR (occurrence: BR)
  Receive Date: 20190710
  Receipt Date: 20190710
  Transmission Date: 20191004
  Serious: Yes (Hospitalization, Other)
  Sender: FDA-Public Use
  Company Number: BR-GLAXOSMITHKLINE-BR2019GSK007718

PATIENT
  Age: 46 Year
  Sex: Female
  Weight: 83 kg

DRUGS (2)
  1. MONTELUKAST [Suspect]
     Active Substance: MONTELUKAST SODIUM
     Indication: PRODUCT USED FOR UNKNOWN INDICATION
     Dosage: UNK
  2. NUCALA [Suspect]
     Active Substance: MEPOLIZUMAB
     Indication: ASTHMA
     Dosage: 100 MG, UNK
     Dates: start: 20190111

REACTIONS (9)
  - Headache [Not Recovered/Not Resolved]
  - Pruritus [Recovered/Resolved]
  - Product dose omission [Unknown]
  - Asthma [Unknown]
  - Asthmatic crisis [Unknown]
  - Oesophagogastric fundoplasty [Unknown]
  - Metabolic surgery [Unknown]
  - Blood count abnormal [Unknown]
  - Protein total increased [Unknown]

NARRATIVE: CASE EVENT DATE: 20190111
